FAERS Safety Report 21355764 (Version 1)
Quarter: 2022Q3

REPORT INFORMATION
  Report Type: Spontaneous
  Country: US (occurrence: US)
  Receive Date: 20220920
  Receipt Date: 20220920
  Transmission Date: 20221027
  Serious: No
  Sender: FDA-Public Use
  Company Number: US-THERAPEUTICSMD-2021TMD02452

PATIENT
  Sex: Female

DRUGS (1)
  1. ANNOVERA [Suspect]
     Active Substance: ETHINYL ESTRADIOL\SEGESTERONE ACETATE
     Dosage: 1 RING, EVERY 21 DAYS
     Route: 067
     Dates: start: 20210806

REACTIONS (2)
  - Abdominal distension [Unknown]
  - Nausea [Unknown]

NARRATIVE: CASE EVENT DATE: 20210101
